FAERS Safety Report 20757654 (Version 2)
Quarter: 2022Q3

REPORT INFORMATION
  Report Type: Report from Study
  Country: US (occurrence: US)
  Receive Date: 20220427
  Receipt Date: 20220725
  Transmission Date: 20221026
  Serious: No
  Sender: FDA-Public Use
  Company Number: US-Ipsen Biopharmaceuticals, Inc.-2022-11365

PATIENT
  Age: 53 Year
  Sex: Male

DRUGS (1)
  1. SOMATULINE DEPOT [Suspect]
     Active Substance: LANREOTIDE ACETATE
     Indication: Neuroendocrine tumour
     Dosage: 120 MG/0.5 ML
     Route: 058
     Dates: start: 2018

REACTIONS (4)
  - Irritability [Recovering/Resolving]
  - Diarrhoea [Recovering/Resolving]
  - Flushing [Recovering/Resolving]
  - Abdominal pain upper [Recovering/Resolving]
